FAERS Safety Report 5017178-1 (Version None)
Quarter: 2006Q2

REPORT INFORMATION
  Report Type: 
  Country: None (occurrence: None)
  Receive Date: 20060525
  Receipt Date: 20060502
  Transmission Date: 20061013
  Serious: Yes (Hospitalization, Other)
  Sender: FDA-Public Use
  Company Number: US200601003724

PATIENT
  Age: 62 Year
  Sex: Female

DRUGS (5)
  1. HUMULIN R [Suspect]
     Dosage: 4 + 3 U, EACH MORNING, UNK
     Dates: start: 20060101
  2. HUMULIN R [Suspect]
     Dosage: 4 + 3 U, EACH MORNING, UNK
     Dates: start: 20060101
  3. HUMULIN R [Suspect]
     Dosage: 4 + 3 U, EACH MORNING, UNK
     Dates: start: 20060101
  4. HUMULIN R [Suspect]
     Dosage: 4 + 3 U, EACH MORNING, UNK
     Dates: start: 20060101
  5. HUMULIN R [Suspect]
     Dosage: AS NEEDED
     Dates: end: 20060101

REACTIONS (7)
  - DIFFICULTY IN WALKING [None]
  - DYSPNOEA [None]
  - FALL [None]
  - HAEMOGLOBIN DECREASED [None]
  - MALAISE [None]
  - MYOCARDIAL INFARCTION [None]
  - RENAL FAILURE [None]
